FAERS Safety Report 15661090 (Version 1)
Quarter: 2018Q4

REPORT INFORMATION
  Report Type: Report from Study
  Country: IT (occurrence: IT)
  Receive Date: 20181127
  Receipt Date: 20181127
  Transmission Date: 20190205
  Serious: Yes (Hospitalization)
  Sender: FDA-Public Use
  Company Number: IT-PFIZER INC-2018483626

PATIENT
  Age: 79 Year
  Sex: Male

DRUGS (8)
  1. CIPRALEX [Suspect]
     Active Substance: ESCITALOPRAM OXALATE
     Indication: INTENTIONAL SELF-INJURY
     Dosage: 28 DF, TOTAL
     Route: 048
     Dates: start: 20171018, end: 20171018
  2. ALPRAZOLAM. [Concomitant]
     Active Substance: ALPRAZOLAM
  3. GABAPENTIN. [Concomitant]
     Active Substance: GABAPENTIN
  4. LEVOPRAID [LEVOSULPIRIDE] [Suspect]
     Active Substance: LEVOSULPIRIDE
     Indication: INTENTIONAL SELF-INJURY
     Dosage: 19 DF, TOTAL
     Route: 048
     Dates: start: 20171018, end: 20171018
  5. OLANZAPINE. [Concomitant]
     Active Substance: OLANZAPINE
  6. XANAX [Suspect]
     Active Substance: ALPRAZOLAM
     Indication: INTENTIONAL SELF-INJURY
     Dosage: 20 DF, TOTAL
     Route: 048
     Dates: start: 20171018, end: 20171018
  7. RABEPRAZOLE SODIUM. [Concomitant]
     Active Substance: RABEPRAZOLE SODIUM
  8. SUCRALFATE. [Concomitant]
     Active Substance: SUCRALFATE

REACTIONS (3)
  - Loss of consciousness [Recovering/Resolving]
  - Drug abuse [Recovering/Resolving]
  - Sopor [Recovering/Resolving]

NARRATIVE: CASE EVENT DATE: 20171018
